FAERS Safety Report 5012992-0 (Version None)
Quarter: 2006Q2

REPORT INFORMATION
  Report Type: 
  Country: None (occurrence: None)
  Receive Date: 20060524
  Receipt Date: 20060314
  Transmission Date: 20061013
  Serious: Yes (Death)
  Sender: FDA-Public Use
  Company Number: T200600279

PATIENT
  Age: 30 Year

DRUGS (1)
  1. HYDROCODONE BITARTRATE/APAP (HYDROCODONE BITARTRATE, ACETAMINOPHEN)TAB [Suspect]
     Dosage: ORAL
     Route: 048

REACTIONS (3)
  - CARDIAC ARREST [None]
  - DRUG ABUSER [None]
  - RESPIRATORY ARREST [None]
